FAERS Safety Report 25421694 (Version 1)
Quarter: 2025Q2

REPORT INFORMATION
  Report Type: Spontaneous
  Country: US (occurrence: US)
  Receive Date: 20250611
  Receipt Date: 20250611
  Transmission Date: 20250716
  Serious: No
  Sender: VIIV
  Company Number: US-VIIV HEALTHCARE-US2025070759

PATIENT
  Sex: Female

DRUGS (2)
  1. DOVATO [Suspect]
     Active Substance: DOLUTEGRAVIR SODIUM\LAMIVUDINE
     Indication: Product used for unknown indication
  2. DORAVIRINE [Concomitant]
     Active Substance: DORAVIRINE
     Indication: Product used for unknown indication

REACTIONS (1)
  - Off label use [Unknown]
